FAERS Safety Report 6430199-7 (Version None)
Quarter: 2009Q4

REPORT INFORMATION
  Report Type: 
  Country: None (occurrence: None)
  Receive Date: 20091106
  Receipt Date: 20091027
  Transmission Date: 20100525
  Serious: Yes (Other)
  Sender: FDA-Public Use
  Company Number: CA-ROCHE-665061

PATIENT
  Age: 10 Year
  Sex: Male

DRUGS (2)
  1. TAMIFLU [Suspect]
     Indication: H1N1 INFLUENZA
     Dosage: FOR FIVE DAYS
     Route: 048
     Dates: start: 20091024
  2. EXJADE [Concomitant]
     Indication: BLOOD PRODUCT TRANSFUSION

REACTIONS (1)
  - CHEST PAIN [None]
